FAERS Safety Report 17316961 (Version 3)
Quarter: 2020Q3

REPORT INFORMATION
  Report Type: Spontaneous
  Country: US (occurrence: US)
  Receive Date: 20200124
  Receipt Date: 20200904
  Transmission Date: 20201102
  Serious: Yes (Death, Hospitalization, Other)
  Sender: FDA-Public Use
  Company Number: US-ASTRAZENECA-2019SE10092

PATIENT
  Age: 23971 Day
  Sex: Female

DRUGS (89)
  1. CYMBALTA [Concomitant]
     Active Substance: DULOXETINE HYDROCHLORIDE
     Route: 065
  2. CILOSTAZOL. [Concomitant]
     Active Substance: CILOSTAZOL
     Route: 065
  3. AMOXICILLIN?CLAV [Concomitant]
     Active Substance: AMOXICILLIN\CLAVULANATE POTASSIUM
  4. SENOKOT [Concomitant]
     Active Substance: SENNOSIDES
  5. ZOLPIDEM [Concomitant]
     Active Substance: ZOLPIDEM TARTRATE
  6. CEFDINIR. [Concomitant]
     Active Substance: CEFDINIR
  7. ACETAMINOPHEN. [Concomitant]
     Active Substance: ACETAMINOPHEN
  8. DULCOLAX NOS [Concomitant]
     Active Substance: BISACODYL OR DOCUSATE SODIUM
  9. LUNESTA [Concomitant]
     Active Substance: ESZOPICLONE
     Route: 065
  10. FUROSEMIDE. [Concomitant]
     Active Substance: FUROSEMIDE
     Indication: SWELLING
     Dates: start: 201610, end: 201612
  11. ESCITALOPRAM [Concomitant]
     Active Substance: ESCITALOPRAM OXALATE
  12. BYDUREON [Concomitant]
     Active Substance: EXENATIDE
  13. POTASSIUM CL [Concomitant]
     Active Substance: POTASSIUM CHLORIDE
  14. DOXYCYCLINE HYCLATE. [Concomitant]
     Active Substance: DOXYCYCLINE HYCLATE
  15. VITAMIN D [Concomitant]
     Active Substance: VITAMIN D NOS
  16. GLUCOSAMINE [Concomitant]
     Active Substance: GLUCOSAMINE
  17. PSEUDOEPHEDRINE. [Concomitant]
     Active Substance: PSEUDOEPHEDRINE HYDROCHLORIDE
  18. VALSARTAN. [Concomitant]
     Active Substance: VALSARTAN
  19. APRESOLINE HYDROCHLORIDE [Concomitant]
     Active Substance: HYDRALAZINE HYDROCHLORIDE
  20. DESYREL [Concomitant]
     Active Substance: TRAZODONE HYDROCHLORIDE
  21. ALUMINIUM?MAGNESIUM HYDROXIDE [Concomitant]
  22. OXYBUTYNIN CHLORIDE. [Concomitant]
     Active Substance: OXYBUTYNIN CHLORIDE
  23. SODIUM CHLORIDE. [Concomitant]
     Active Substance: SODIUM CHLORIDE
  24. PRILOSEC [Suspect]
     Active Substance: OMEPRAZOLE MAGNESIUM
     Indication: GASTROOESOPHAGEAL REFLUX DISEASE
     Dosage: GENERIC
     Route: 048
     Dates: start: 20161011
  25. ATENOLOL. [Concomitant]
     Active Substance: ATENOLOL
     Route: 065
  26. CLOPIDOGREL [Concomitant]
     Active Substance: CLOPIDOGREL BISULFATE
     Dates: start: 201303, end: 201612
  27. CLONAZEPAM. [Concomitant]
     Active Substance: CLONAZEPAM
  28. AMLODIPINE BESYLATE. [Concomitant]
     Active Substance: AMLODIPINE BESYLATE
  29. MUPIROCIN. [Concomitant]
     Active Substance: MUPIROCIN
  30. SULFAMETH/TMP [Concomitant]
     Active Substance: SULFAMETHOXAZOLE\TRIMETHOPRIM
  31. DIFLUCAN [Concomitant]
     Active Substance: FLUCONAZOLE
  32. ONDANSETRON [Concomitant]
     Active Substance: ONDANSETRON
  33. PRILOSEC [Suspect]
     Active Substance: OMEPRAZOLE MAGNESIUM
     Indication: GASTROOESOPHAGEAL REFLUX DISEASE
     Route: 048
     Dates: start: 2006, end: 2016
  34. HYDROCHLOROTHIAZIDE. [Concomitant]
     Active Substance: HYDROCHLOROTHIAZIDE
     Route: 065
  35. HYDROCODONE/ACETAMINOPHEN [Concomitant]
     Active Substance: ACETAMINOPHEN\HYDROCODONE
  36. CHERATUSSIN [Concomitant]
     Active Substance: AMMONIUM CHLORIDE\DEXTROMETHORPHAN\SODIUM CITRATE
  37. FERREX [Concomitant]
     Active Substance: FERRIC POLYSACCHARIDE COMPLEX
  38. STADOL [Concomitant]
     Active Substance: BUTORPHANOL TARTRATE
  39. BACTRIM [Concomitant]
     Active Substance: SULFAMETHOXAZOLE\TRIMETHOPRIM
  40. SESTIMIBI [Concomitant]
  41. LACTIC ACID. [Concomitant]
     Active Substance: LACTIC ACID
  42. SYMBICORT [Concomitant]
     Active Substance: BUDESONIDE\FORMOTEROL FUMARATE DIHYDRATE
  43. FENTANYL. [Concomitant]
     Active Substance: FENTANYL
  44. PRILOSEC [Suspect]
     Active Substance: OMEPRAZOLE MAGNESIUM
     Indication: GASTROOESOPHAGEAL REFLUX DISEASE
     Dosage: GENERIC
     Route: 065
     Dates: start: 20160227, end: 20161011
  45. GLIMEPIRIDE. [Concomitant]
     Active Substance: GLIMEPIRIDE
     Route: 065
  46. NITROGLYCERIN. [Concomitant]
     Active Substance: NITROGLYCERIN
     Route: 065
  47. AZITHROMYCIN ANHYDROUS. [Concomitant]
     Active Substance: AZITHROMYCIN ANHYDROUS
     Indication: INFECTION
     Dates: start: 201604
  48. JANUVIA [Concomitant]
     Active Substance: SITAGLIPTIN PHOSPHATE
  49. ACETAMINOPHEN/COD [Concomitant]
  50. TRIAMCINOLONE [Concomitant]
     Active Substance: TRIAMCINOLONE
  51. LEXAPRO [Concomitant]
     Active Substance: ESCITALOPRAM OXALATE
  52. NOVOLOG [Concomitant]
     Active Substance: INSULIN ASPART
  53. ASPIRIN. [Concomitant]
     Active Substance: ASPIRIN
     Route: 065
  54. METFORMIN [Concomitant]
     Active Substance: METFORMIN HYDROCHLORIDE
     Route: 065
  55. ATORVASTATIN [Concomitant]
     Active Substance: ATORVASTATIN
     Indication: BLOOD CHOLESTEROL ABNORMAL
     Dates: start: 201606
  56. TRIMETHOPRIM. [Concomitant]
     Active Substance: TRIMETHOPRIM
     Indication: INFECTION
     Dates: start: 201504
  57. TRIMETHOPRIM?SULFAMETHOXAZOL [Concomitant]
  58. PLAVIX [Concomitant]
     Active Substance: CLOPIDOGREL BISULFATE
  59. GABAPENTIN. [Concomitant]
     Active Substance: GABAPENTIN
  60. BENZONATATE. [Concomitant]
     Active Substance: BENZONATATE
  61. ISOSORBIDE MONONITRATE. [Concomitant]
     Active Substance: ISOSORBIDE MONONITRATE
  62. PERMETHRIN. [Concomitant]
     Active Substance: PERMETHRIN
  63. PNEUMOVAX 23 [Concomitant]
     Active Substance: PNEUMOCOCCAL VACCINE, POLYVALENT 23
  64. MAGNESIUM [Concomitant]
     Active Substance: MAGNESIUM
  65. TOPICORT [Concomitant]
     Active Substance: DESOXIMETASONE
  66. LEXISCAN [Concomitant]
     Active Substance: REGADENOSON
  67. DEXTROSE. [Concomitant]
     Active Substance: DEXTROSE
  68. XANAX [Concomitant]
     Active Substance: ALPRAZOLAM
     Route: 065
  69. OXYBUTYNIN. [Concomitant]
     Active Substance: OXYBUTYNIN CHLORIDE
     Route: 065
  70. SIMVASTATIN. [Concomitant]
     Active Substance: SIMVASTATIN
     Route: 065
  71. AMOXICILLIN. [Concomitant]
     Active Substance: AMOXICILLIN
     Indication: INFECTION
     Dates: start: 201308
  72. TRAZODONE [Concomitant]
     Active Substance: TRAZODONE HYDROCHLORIDE
  73. CRESTOR [Concomitant]
     Active Substance: ROSUVASTATIN CALCIUM
  74. INSULIN [Concomitant]
     Active Substance: INSULIN NOS
  75. DOCUSATE CALCIUM. [Concomitant]
     Active Substance: DOCUSATE CALCIUM
  76. NEXIUM [Suspect]
     Active Substance: ESOMEPRAZOLE MAGNESIUM
     Indication: GASTROOESOPHAGEAL REFLUX DISEASE
     Route: 048
  77. NEXIUM [Suspect]
     Active Substance: ESOMEPRAZOLE MAGNESIUM
     Indication: GASTROOESOPHAGEAL REFLUX DISEASE
     Route: 048
     Dates: start: 2006, end: 2016
  78. LOSARTAN. [Concomitant]
     Active Substance: LOSARTAN
     Indication: HYPERTENSION
     Dates: start: 201511, end: 201602
  79. TUMS [Concomitant]
     Active Substance: CALCIUM CARBONATE
     Dates: start: 2005
  80. HEPARIN [Concomitant]
     Active Substance: HEPARIN SODIUM
  81. TRICOR [Concomitant]
     Active Substance: FENOFIBRATE
  82. SUCRALFATE. [Concomitant]
     Active Substance: SUCRALFATE
  83. IPRATROPI/ALB [Concomitant]
  84. PREDNISONE. [Concomitant]
     Active Substance: PREDNISONE
  85. BUSPIRONE [Concomitant]
     Active Substance: BUSPIRONE HYDROCHLORIDE
  86. FLUZONE [Concomitant]
     Active Substance: INFLUENZA A VIRUS A/CALIFORNIA/7/2009 X-179A (H1N1) ANTIGEN (FORMALDEHYDE INACTIVATED)\INFLUENZA A VIRUS A/VICTORIA/210/2009 X-187 (H3N2) ANTIGEN (FORMALDEHYDE INACTIVATED)\INFLUENZA B VIRUS B/BRISBANE/60/2008 ANTIGEN (FORMALDEHYDE INACTIVATED)
  87. ALTACE [Concomitant]
     Active Substance: RAMIPRIL
  88. FERRITIN [Concomitant]
     Active Substance: FERRITIN
  89. MORPHINE [Concomitant]
     Active Substance: MORPHINE

REACTIONS (6)
  - Renal failure [Unknown]
  - Nephropathy [Not Recovered/Not Resolved]
  - Nephrogenic anaemia [Unknown]
  - Acute kidney injury [Unknown]
  - Chronic kidney disease [Unknown]
  - Rebound acid hypersecretion [Unknown]

NARRATIVE: CASE EVENT DATE: 20160617
